FAERS Safety Report 9660491 (Version 1)
Quarter: 2013Q4

REPORT INFORMATION
  Report Type: Spontaneous
  Country: US (occurrence: US)
  Receive Date: 20131031
  Receipt Date: 20131031
  Transmission Date: 20140711
  Serious: No
  Sender: FDA-Public Use
  Company Number: US-009507513-1310USA015019

PATIENT
  Sex: Male

DRUGS (3)
  1. MIRALAX [Suspect]
     Indication: CONSTIPATION
     Dosage: UNK, UNKNOWN
     Dates: start: 20131022
  2. MIRALAX [Suspect]
     Dosage: UNK, ONCE
     Route: 048
     Dates: start: 20131023
  3. MIRALAX [Suspect]
     Dosage: UNK, ONCE
     Route: 048
     Dates: start: 20131024

REACTIONS (2)
  - Therapeutic response unexpected [Unknown]
  - Inappropriate schedule of drug administration [Unknown]
